FAERS Safety Report 16715134 (Version 2)
Quarter: 2019Q3

REPORT INFORMATION
  Report Type: Spontaneous
  Country: DE (occurrence: DE)
  Receive Date: 20190819
  Receipt Date: 20190830
  Transmission Date: 20191005
  Serious: Yes (Life-Threatening, Hospitalization, Disabling, Other)
  Sender: FDA-Public Use
  Company Number: DE-PFIZER INC-2019350687

PATIENT
  Age: 38 Year
  Sex: Male
  Weight: 82 kg

DRUGS (6)
  1. MOVICOL [Concomitant]
     Active Substance: POLYETHYLENE GLYCOL 3350\POTASSIUM CHLORIDE\SODIUM BICARBONATE\SODIUM CHLORIDE
     Dosage: UNK , 1X/DAY
     Dates: end: 201904
  2. CLEXANE [Concomitant]
     Active Substance: ENOXAPARIN SODIUM
     Indication: SCIATICA
     Dosage: 0.4 UNK, 1X/DAY
     Route: 058
     Dates: end: 201904
  3. NOVALGIN [Concomitant]
     Indication: SCIATICA
     Dosage: 500 MG, 4X/DAY
     Route: 048
     Dates: end: 201904
  4. PANTOPRAZOLE [Concomitant]
     Active Substance: PANTOPRAZOLE
     Indication: SCIATICA
     Dosage: 40 MG, 1X/DAY
     Route: 048
     Dates: end: 201904
  5. LYRICA [Suspect]
     Active Substance: PREGABALIN
     Indication: SCIATICA
     Dosage: 50 MG, 2X/DAY
     Route: 048
     Dates: start: 20190319, end: 201905
  6. OXYCODON RETARD [Concomitant]
     Indication: SCIATICA
     Dosage: 5/2.5 MG, 2X/DAY
     Route: 048
     Dates: end: 201904

REACTIONS (1)
  - Hepatic failure [Not Recovered/Not Resolved]

NARRATIVE: CASE EVENT DATE: 2019
